FAERS Safety Report 7827378-0 (Version None)
Quarter: 2011Q4

REPORT INFORMATION
  Report Type: 
  Country: None (occurrence: None)
  Receive Date: 20111020
  Receipt Date: 20111012
  Transmission Date: 20120403
  Serious: Yes (Hospitalization)
  Sender: FDA-Public Use
  Company Number: US-BRISTOL-MYERS SQUIBB COMPANY-16107963

PATIENT
  Age: 71 Year
  Sex: Male
  Weight: 127 kg

DRUGS (30)
  1. HUMULIN R [Concomitant]
     Dates: start: 20110614
  2. CARAFATE [Concomitant]
     Dates: start: 20110802
  3. PEMETREXED DISODIUM [Suspect]
     Indication: HEAD AND NECK CANCER
     Dosage: LAST DOSE ON 7SEP11
     Route: 042
     Dates: start: 20110614
  4. ALOXI [Concomitant]
     Dates: start: 20110614
  5. MAGNESIUM CHLORIDE [Concomitant]
     Dates: start: 20110628
  6. CETUXIMAB [Suspect]
     Indication: HEAD AND NECK CANCER
     Dosage: ON DAY1 EVERY 21 DAYS 250 MG/M2 WEEKLY (1/W) LAST DOSE ON 14SEP11;INTERUPTED ON 21SEP2011
     Route: 042
     Dates: start: 20110614
  7. METFORMIN HCL [Concomitant]
     Dates: start: 20100101
  8. MINOCYCLINE HCL [Concomitant]
     Dates: start: 20110627
  9. AMIODARONE HCL [Concomitant]
     Dates: start: 20110723
  10. HYDROCORTISONE [Concomitant]
     Dates: start: 20110627
  11. VITAMIN B-12 [Concomitant]
     Dates: start: 20110526
  12. KLOR-CON [Concomitant]
     Dates: start: 20000101
  13. SIMCOR [Concomitant]
     Dates: start: 20040101
  14. HYZAAR [Concomitant]
     Dates: start: 20110715
  15. LOPRESSOR [Concomitant]
     Dates: start: 20110719
  16. COUMADIN [Concomitant]
     Dates: start: 20110818
  17. CARBOPLATIN [Suspect]
     Indication: HEAD AND NECK CANCER
     Dosage: 1DF:5 AUC LAST DOSE ON 7SEP11
     Route: 042
     Dates: start: 20110614
  18. BENADRYL [Concomitant]
     Dates: start: 20110613
  19. MAGNESIUM [Concomitant]
     Dates: start: 20110824
  20. CLONIDINE [Concomitant]
     Dates: start: 20080101
  21. DECADRON [Concomitant]
     Dates: start: 20110613
  22. ZANTAC [Concomitant]
     Dates: start: 20110613
  23. NEULASTA [Concomitant]
     Dates: start: 20110615
  24. FOLIC ACID [Concomitant]
     Dates: start: 20110526
  25. BETAPACE AF [Concomitant]
     Dates: start: 20100101
  26. ASPIRIN [Concomitant]
     Dates: start: 20100101
  27. LORAZEPAM [Concomitant]
     Dates: start: 20070101
  28. MAG-OX [Concomitant]
     Dates: start: 20110628
  29. DILTIAZEM CD [Concomitant]
     Dates: start: 20110716
  30. PROCRIT [Concomitant]
     Dates: start: 20110817

REACTIONS (4)
  - ATRIAL FIBRILLATION [None]
  - FEBRILE NEUTROPENIA [None]
  - UROSEPSIS [None]
  - EPISTAXIS [None]
